FAERS Safety Report 21649298 (Version 1)
Quarter: 2022Q4

REPORT INFORMATION
  Report Type: Spontaneous
  Country: CL (occurrence: CL)
  Receive Date: 20221128
  Receipt Date: 20221128
  Transmission Date: 20230113
  Serious: Yes (Other)
  Sender: FDA-Public Use
  Company Number: CL-SUN PHARMACEUTICAL INDUSTRIES LTD-2022R1-365869

PATIENT
  Age: 55 Year
  Sex: Female

DRUGS (3)
  1. TRAZODONE [Suspect]
     Active Substance: TRAZODONE HYDROCHLORIDE
     Indication: Insomnia
     Dosage: UNK
     Route: 065
  2. TRAZODONE [Suspect]
     Active Substance: TRAZODONE HYDROCHLORIDE
     Dosage: 100 MILLIGRAM
     Route: 065
  3. TRAZODONE [Suspect]
     Active Substance: TRAZODONE HYDROCHLORIDE
     Dosage: 25 MILLIGRAM EVERY TWO WEEKS
     Route: 065

REACTIONS (1)
  - Oromandibular dystonia [Recovering/Resolving]
